FAERS Safety Report 12054217 (Version 1)
Quarter: 2016Q1

REPORT INFORMATION
  Report Type: Spontaneous
  Country: NZ (occurrence: NZ)
  Receive Date: 20160209
  Receipt Date: 20160209
  Transmission Date: 20160526
  Serious: Yes (Death, Hospitalization)
  Sender: FDA-Public Use
  Company Number: NZ-JNJFOC-20151125877

PATIENT
  Age: 73 Year
  Sex: Male

DRUGS (1)
  1. IMBRUVICA [Suspect]
     Active Substance: IBRUTINIB
     Indication: CHRONIC LYMPHOCYTIC LEUKAEMIA
     Route: 048
     Dates: start: 201508, end: 201512

REACTIONS (5)
  - Left ventricular hypertrophy [Unknown]
  - Dehydration [Unknown]
  - Acute kidney injury [Fatal]
  - Atrial fibrillation [Not Recovered/Not Resolved]
  - Lymphocytic infiltration [Unknown]

NARRATIVE: CASE EVENT DATE: 20151112
